FAERS Safety Report 5721265-X (Version None)
Quarter: 2008Q2

REPORT INFORMATION
  Report Type: 
  Country: None (occurrence: None)
  Receive Date: 20080428
  Receipt Date: 20080428
  Transmission Date: 20081010
  Serious: No
  Sender: FDA-Public Use
  Company Number: None

PATIENT
  Age: 45 Year
  Sex: Female
  Weight: 117.9352 kg

DRUGS (2)
  1. BYETTA [Suspect]
     Indication: DIABETES MELLITUS
     Dosage: 10 MCG BID SQ
     Route: 058
     Dates: start: 20080416, end: 20080421
  2. BYETTA [Suspect]
     Indication: WEIGHT CONTROL
     Dosage: 10 MCG BID SQ
     Route: 058
     Dates: start: 20080416, end: 20080421

REACTIONS (4)
  - NAUSEA [None]
  - SWELLING [None]
  - URTICARIA [None]
  - VOMITING [None]
